FAERS Safety Report 9170812 (Version 1)
Quarter: 2013Q1

REPORT INFORMATION
  Report Type: Spontaneous
  Country: US (occurrence: US)
  Receive Date: 20130319
  Receipt Date: 20130319
  Transmission Date: 20140127
  Serious: No
  Sender: FDA-Public Use
  Company Number: US-PFIZER INC-2013088337

PATIENT
  Age: 74 Year
  Sex: Male
  Weight: 85.71 kg

DRUGS (5)
  1. CHANTIX [Suspect]
     Indication: SMOKING CESSATION THERAPY
     Dosage: UNK
     Route: 048
  2. SANDOSTATIN [Concomitant]
     Indication: GASTROINTESTINAL CARCINOMA
     Dosage: UNK, MONTHLY
  3. VALSARTAN [Concomitant]
     Indication: HYPERTENSION
     Dosage: UNK
  4. AMLODIPINE [Concomitant]
     Dosage: 10 MG, 1X/DAY
  5. LORAZEPAM [Concomitant]
     Dosage: 4 MG, 1X/DAY

REACTIONS (2)
  - Depression [Unknown]
  - Hypersomnia [Unknown]
